FAERS Safety Report 4464983-6 (Version None)
Quarter: 2004Q4

REPORT INFORMATION
  Report Type: 
  Country: None (occurrence: None)
  Receive Date: 20041004
  Receipt Date: 20040511
  Transmission Date: 20050328
  Serious: No
  Sender: FDA-Public Use
  Company Number: 370324

PATIENT
  Sex: Female

DRUGS (1)
  1. COREG [Suspect]
     Indication: DRUG USE FOR UNKNOWN INDICATION
     Dosage: 6.25MG TWICE PER DAY

REACTIONS (2)
  - BLOOD PRESSURE DECREASED [None]
  - MEDICATION ERROR [None]
